FAERS Safety Report 5491991-9 (Version None)
Quarter: 2007Q4

REPORT INFORMATION
  Report Type: 
  Country: None (occurrence: None)
  Receive Date: 20071022
  Receipt Date: 20071012
  Transmission Date: 20080405
  Serious: Yes (Other)
  Sender: FDA-Public Use
  Company Number: B0484502A

PATIENT
  Age: 40 Year
  Sex: Male
  Weight: 100 kg

DRUGS (4)
  1. AROPAX [Suspect]
     Indication: OBSESSIVE-COMPULSIVE DISORDER
     Route: 048
     Dates: start: 20020601
  2. TRAMADOL HCL [Concomitant]
  3. VALIUM [Concomitant]
     Dates: end: 20051201
  4. UNKNOWN DRUG [Concomitant]

REACTIONS (3)
  - DYSKINESIA [None]
  - MUSCLE TWITCHING [None]
  - OBSESSIVE-COMPULSIVE DISORDER [None]
